FAERS Safety Report 4987858-2 (Version None)
Quarter: 2006Q2

REPORT INFORMATION
  Report Type: 
  Country: None (occurrence: None)
  Receive Date: 20060417
  Receipt Date: 20060405
  Transmission Date: 20061013
  Serious: Yes (Other)
  Sender: FDA-Public Use
  Company Number: 200610114BBE

PATIENT
  Age: 68 Year
  Sex: Female

DRUGS (2)
  1. GAMUNEX [Suspect]
     Dosage: SEE IMAGE, INTRAVENOUS
     Route: 042
     Dates: start: 20060401
  2. GAMUNEX [Suspect]

REACTIONS (4)
  - BODY TEMPERATURE INCREASED [None]
  - CHEST DISCOMFORT [None]
  - OXYGEN SATURATION DECREASED [None]
  - RESPIRATORY RATE INCREASED [None]
